FAERS Safety Report 9932064 (Version 1)
Quarter: 2014Q1

REPORT INFORMATION
  Report Type: Report from Study
  Country: US (occurrence: US)
  Receive Date: 20140228
  Receipt Date: 20140228
  Transmission Date: 20141002
  Serious: No
  Sender: FDA-Public Use
  Company Number: US-ABBVIE-13P-163-1131857-00

PATIENT
  Sex: Male
  Weight: 103.06 kg

DRUGS (3)
  1. ANDROGEL [Suspect]
     Indication: BLOOD TESTOSTERONE DECREASED
     Dosage: 50 MILLIGRAMS DAILY
     Route: 061
     Dates: start: 2009, end: 201307
  2. SOTALOL [Concomitant]
     Indication: WOLFF-PARKINSON-WHITE SYNDROME
  3. ASPIRIN [Concomitant]
     Indication: WOLFF-PARKINSON-WHITE SYNDROME

REACTIONS (3)
  - Inappropriate schedule of drug administration [Unknown]
  - Blood testosterone decreased [Not Recovered/Not Resolved]
  - Pruritus genital [Recovered/Resolved]
